FAERS Safety Report 17604025 (Version 1)
Quarter: 2020Q1

REPORT INFORMATION
  Report Type: Spontaneous
  Country: JP (occurrence: JP)
  Receive Date: 20200331
  Receipt Date: 20200331
  Transmission Date: 20200409
  Serious: Yes (Hospitalization)
  Sender: FDA-Public Use
  Company Number: JP-MYLANLABS-2020M1033147

PATIENT
  Age: 71 Year
  Sex: Female

DRUGS (3)
  1. METHOTREXATE. [Suspect]
     Active Substance: METHOTREXATE
     Indication: RHEUMATOID ARTHRITIS
     Dosage: 8 MILLIGRAM, QW
     Route: 065
  2. TACROLIMUS. [Suspect]
     Active Substance: TACROLIMUS
     Indication: RHEUMATOID ARTHRITIS
     Dosage: 1 MILLIGRAM, QD
     Route: 065
  3. PREDNISOLONE. [Suspect]
     Active Substance: PREDNISOLONE
     Indication: RHEUMATOID ARTHRITIS
     Dosage: 0.5 MILLIGRAM, QD
     Route: 065

REACTIONS (7)
  - Diffuse large B-cell lymphoma [Recovered/Resolved]
  - Gastric stenosis [Recovered/Resolved]
  - Peritonitis [Recovered/Resolved]
  - Abdominal adhesions [Recovered/Resolved]
  - Gastric ulcer [Recovered/Resolved]
  - Lymphoproliferative disorder [Recovered/Resolved]
  - Gastric perforation [Recovered/Resolved]
